FAERS Safety Report 18366897 (Version 3)
Quarter: 2021Q3

REPORT INFORMATION
  Report Type: Report from Study
  Country: CA (occurrence: CA)
  Receive Date: 20201009
  Receipt Date: 20210818
  Transmission Date: 20211014
  Serious: Yes (Other)
  Sender: FDA-Public Use
  Company Number: CA-JNJFOC-20200309733

PATIENT
  Age: 37 Year
  Sex: Female
  Weight: 64 kg

DRUGS (1)
  1. REMICADE [Suspect]
     Active Substance: INFLIXIMAB
     Indication: CROHN^S DISEASE
     Route: 042
     Dates: start: 20140408, end: 20210727

REACTIONS (6)
  - Abdominal abscess [Unknown]
  - Fistula [Not Recovered/Not Resolved]
  - Breast abscess [Recovering/Resolving]
  - Wound infection staphylococcal [Not Recovered/Not Resolved]
  - Skin irritation [Unknown]
  - Abscess [Unknown]

NARRATIVE: CASE EVENT DATE: 20200122
